FAERS Safety Report 5291645-8 (Version None)
Quarter: 2007Q2

REPORT INFORMATION
  Report Type: 
  Country: None (occurrence: None)
  Receive Date: 20070410
  Receipt Date: 20070329
  Transmission Date: 20071010
  Serious: Yes (Hospitalization, Other)
  Sender: FDA-Public Use
  Company Number: US-JNJFOC-20070307051

PATIENT
  Age: 47 Year
  Sex: Male

DRUGS (22)
  1. PREZISTA [Suspect]
     Indication: HIV INFECTION
     Route: 048
  2. MK0518 [Suspect]
     Indication: HIV INFECTION
     Route: 048
  3. VFEND [Concomitant]
     Route: 065
  4. FENTANYL [Concomitant]
     Route: 065
  5. TRUVADA [Concomitant]
     Indication: HIV INFECTION
     Route: 048
  6. RITONAVIR [Concomitant]
     Indication: HIV INFECTION
     Route: 048
  7. LEVAQUIN [Concomitant]
     Route: 065
  8. ACYCLOVIR [Concomitant]
     Route: 065
  9. ALDACTONE [Concomitant]
     Route: 048
  10. FLUORINEF [Concomitant]
     Route: 065
  11. PROTONIX [Concomitant]
     Route: 065
  12. SEPTRA DS [Concomitant]
     Route: 065
  13. ETHAMBUTOL HCL [Concomitant]
     Route: 065
  14. AZITHROMYCIN [Concomitant]
     Route: 065
  15. DILAUDID [Concomitant]
     Route: 065
  16. REGLAN [Concomitant]
     Route: 065
  17. ATIVAN [Concomitant]
     Route: 065
  18. COMPAZINE [Concomitant]
     Route: 065
  19. LOMOTIL [Concomitant]
     Route: 065
  20. OPIUM [Concomitant]
     Route: 065
  21. ANZEMET [Concomitant]
     Route: 065
  22. AMIKACIN [Concomitant]
     Route: 065

REACTIONS (3)
  - ADVERSE DRUG REACTION [None]
  - HYPERKALAEMIA [None]
  - RENAL FAILURE ACUTE [None]
